FAERS Safety Report 16175565 (Version 4)
Quarter: 2019Q2

REPORT INFORMATION
  Report Type: Spontaneous
  Country: JP (occurrence: JP)
  Receive Date: 20190409
  Receipt Date: 20190529
  Transmission Date: 20190711
  Serious: Yes (Hospitalization, Other)
  Sender: FDA-Public Use
  Company Number: JP-GILEAD-2019-0400040

PATIENT
  Age: 70 Year
  Sex: Male
  Weight: 53.5 kg

DRUGS (9)
  1. MAGMITT [Concomitant]
     Active Substance: MAGNESIUM OXIDE
     Indication: CONSTIPATION
     Dosage: 6 DOSAGE FORM, TID
     Route: 048
     Dates: start: 20181228
  2. EPCLUSA [Suspect]
     Active Substance: SOFOSBUVIR\VELPATASVIR
     Indication: HEPATIC CIRRHOSIS
     Dosage: 1 DOSAGE FORM, QD
     Route: 048
     Dates: start: 20190301
  3. REBETOL [Suspect]
     Active Substance: RIBAVIRIN
     Indication: HEPATIC CIRRHOSIS
     Dosage: 600 MG
     Route: 048
     Dates: start: 20190301
  4. ALDACTONE A [Concomitant]
     Active Substance: SPIRONOLACTONE
     Indication: OEDEMA
     Dosage: 2 DOSAGE FORM, BID
     Route: 048
     Dates: start: 20190104
  5. REBETOL [Suspect]
     Active Substance: RIBAVIRIN
     Dosage: 600 MG
     Route: 048
     Dates: start: 20190308
  6. REBETOL [Suspect]
     Active Substance: RIBAVIRIN
     Dosage: 400 MG
     Route: 048
     Dates: start: 20190329
  7. ALDACTONE A [Concomitant]
     Active Substance: SPIRONOLACTONE
     Dosage: 300 MG
     Route: 042
     Dates: start: 20190414
  8. REMITCH OD [Concomitant]
     Indication: PRURITUS
     Dosage: 1 DOSAGE FORM, QD
     Route: 048
     Dates: start: 20181228
  9. REBETOL [Suspect]
     Active Substance: RIBAVIRIN
     Dosage: 200 MG
     Route: 048
     Dates: start: 20190330, end: 20190331

REACTIONS (6)
  - Hydrocele [Recovered/Resolved]
  - Nausea [Recovered/Resolved]
  - Hypoalbuminaemia [Unknown]
  - Pneumonia [Recovered/Resolved]
  - Anaemia [Recovered/Resolved]
  - Ascites [Recovered/Resolved]

NARRATIVE: CASE EVENT DATE: 20190315
